FAERS Safety Report 6395941-2 (Version None)
Quarter: 2009Q4

REPORT INFORMATION
  Report Type: 
  Country: None (occurrence: None)
  Receive Date: 20091007
  Receipt Date: 20090922
  Transmission Date: 20100525
  Serious: Yes (Other)
  Sender: FDA-Public Use
  Company Number: AUR-APL-2009-00756

PATIENT
  Age: 45 Year
  Sex: Female
  Weight: 64.4108 kg

DRUGS (4)
  1. RISPERIDONE [Suspect]
  2. XANAX [Suspect]
     Indication: ANXIETY
     Dosage: 1 TABLET - TID - QID - ORAL
     Route: 048
     Dates: start: 19950101
  3. ZOLOFT [Suspect]
     Indication: DEPRESSION
     Dosage: 1 TABLET - DAILY - ORALLY
     Route: 048
     Dates: start: 19950101
  4. WELLBUTRIN [Suspect]
     Indication: MANIA
     Dosage: 1 TABLET - DAILY - ORALLY
     Route: 048
     Dates: start: 19950101

REACTIONS (10)
  - AMNESIA [None]
  - ANXIETY [None]
  - BIPOLAR I DISORDER [None]
  - CONDITION AGGRAVATED [None]
  - HYPERTONIC BLADDER [None]
  - JOINT SWELLING [None]
  - OEDEMA PERIPHERAL [None]
  - OSTEOPOROSIS [None]
  - SUICIDAL IDEATION [None]
  - SWELLING FACE [None]
